FAERS Safety Report 9551701 (Version 1)
Quarter: 2013Q3

REPORT INFORMATION
  Report Type: Spontaneous
  Country: US (occurrence: None)
  Receive Date: 20130923
  Receipt Date: 20130923
  Transmission Date: 20140515
  Serious: Yes (Hospitalization)
  Sender: FDA-Public Use
  Company Number: None

PATIENT
  Age: 52 None
  Sex: Male

DRUGS (1)
  1. SIMPONI [Suspect]
     Indication: PSORIATIC ARTHROPATHY
     Dosage: INJECT 50 MG UNDER THE SKIN EVERY 28 DAYS
     Dates: start: 20120723

REACTIONS (2)
  - Myocardial infarction [None]
  - Stent placement [None]
